FAERS Safety Report 20843462 (Version 1)
Quarter: 2022Q2

REPORT INFORMATION
  Report Type: Spontaneous
  Country: US (occurrence: US)
  Receive Date: 20220518
  Receipt Date: 20220518
  Transmission Date: 20220721
  Serious: Yes (Other)
  Sender: FDA-Public Use
  Company Number: US-LUPIN PHARMACEUTICALS INC.-2022-07129

PATIENT
  Age: 73 Year
  Sex: Male

DRUGS (3)
  1. CEPHALEXIN [Suspect]
     Active Substance: CEPHALEXIN
     Indication: Cellulitis
     Dosage: 500 MG, QID (500 MG BY MOUTH EVERY 6 HOURS FOR 7 DAYS)
     Route: 048
  2. CEPHALEXIN [Suspect]
     Active Substance: CEPHALEXIN
     Indication: Dermatitis contact
     Dosage: 500 MG, BID (500 MG BY MOUTH TWICE A DAY TO TAKE FOR 7 DAY)
     Route: 048
  3. FLUCONAZOLE [Suspect]
     Active Substance: FLUCONAZOLE
     Indication: Tinea barbae
     Dosage: 200 MG (WEEKLY FOR SIX DOSES)
     Route: 065

REACTIONS (2)
  - Dermatosis [Unknown]
  - Dermatophytosis [Unknown]
